FAERS Safety Report 6199405-0 (Version None)
Quarter: 2009Q2

REPORT INFORMATION
  Report Type: 
  Country: None (occurrence: None)
  Receive Date: 20090520
  Receipt Date: 20090520
  Transmission Date: 20091009
  Serious: Yes (Other)
  Sender: FDA-Public Use
  Company Number: None

PATIENT
  Age: 29 Year
  Sex: Female
  Weight: 90.7194 kg

DRUGS (1)
  1. PRISTIQ [Suspect]
     Dosage: 50MG QD PO
     Route: 048
     Dates: start: 20090302, end: 20090517

REACTIONS (4)
  - ARTHRALGIA [None]
  - CONTUSION [None]
  - HAEMATOMA [None]
  - JOINT SWELLING [None]
